FAERS Safety Report 20526632 (Version 1)
Quarter: 2022Q1

REPORT INFORMATION
  Report Type: Spontaneous
  Country: DE (occurrence: DE)
  Receive Date: 20220228
  Receipt Date: 20220228
  Transmission Date: 20220423
  Serious: Yes (Other)
  Sender: FDA-Public Use
  Company Number: DE-LUNDBECK-DKLU3044383

PATIENT
  Sex: Male
  Weight: 2.4 kg

DRUGS (5)
  1. CITALOPRAM HYDROBROMIDE [Suspect]
     Active Substance: CITALOPRAM HYDROBROMIDE
     Indication: Exposure during pregnancy
     Dosage: 10 [MG/D]
     Route: 064
     Dates: start: 20200819, end: 20210518
  2. MIRTAZAPINE [Suspect]
     Active Substance: MIRTAZAPINE
     Indication: Exposure during pregnancy
     Dosage: 7.5 MG, BID
     Route: 064
     Dates: start: 20200819, end: 20210518
  3. DOXYLAMINE SUCCINATE [Concomitant]
     Active Substance: DOXYLAMINE SUCCINATE
     Indication: Exposure during pregnancy
     Route: 064
  4. FOLIC ACID [Concomitant]
     Active Substance: FOLIC ACID
     Indication: Exposure during pregnancy
     Route: 064
     Dates: start: 20200819, end: 20201027
  5. BUDESONIDE [Concomitant]
     Active Substance: BUDESONIDE
     Indication: Exposure during pregnancy
     Route: 064
     Dates: start: 20200819, end: 20210518

REACTIONS (2)
  - Small for dates baby [Unknown]
  - Pregnancy [Unknown]
